FAERS Safety Report 4496204-2 (Version None)
Quarter: 2004Q4

REPORT INFORMATION
  Report Type: 
  Country: None (occurrence: None)
  Receive Date: 20041108
  Receipt Date: 20041108
  Transmission Date: 20050328
  Serious: Yes (Life-Threatening)
  Sender: FDA-Public Use
  Company Number: None

PATIENT
  Sex: Female
  Weight: 52.1637 kg

DRUGS (4)
  1. LAMISIL [Suspect]
     Indication: ONYCHOMYCOSIS
     Dosage: ONE TAB, BY MOUTH DAILY
     Route: 048
     Dates: start: 20040201, end: 20040401
  2. ZYRTEC [Concomitant]
  3. DETROL LA [Concomitant]
  4. IMITREX [Concomitant]

REACTIONS (7)
  - ERYTHEMA [None]
  - HEPATIC FAILURE [None]
  - HEPATITIS [None]
  - HEPATOTOXICITY [None]
  - INSOMNIA [None]
  - PRURITUS [None]
  - SKIN LESION [None]
